FAERS Safety Report 21460400 (Version 1)
Quarter: 2022Q4

REPORT INFORMATION
  Report Type: Spontaneous
  Country: AU (occurrence: AU)
  Receive Date: 20221014
  Receipt Date: 20221014
  Transmission Date: 20230113
  Serious: Yes (Other)
  Sender: FDA-Public Use
  Company Number: AU-BAUSCH-BL-2022-023563

PATIENT
  Age: 61 Year
  Sex: Female

DRUGS (4)
  1. HYDROCORTISONE [Suspect]
     Active Substance: HYDROCORTISONE
     Indication: Product used for unknown indication
     Route: 065
  2. SODIUM CHLORIDE [Suspect]
     Active Substance: SODIUM CHLORIDE
     Indication: Product used for unknown indication
     Route: 065
  3. MAGNESIUM SULFATE [Suspect]
     Active Substance: MAGNESIUM SULFATE
     Indication: Product used for unknown indication
     Route: 065
  4. ISOPROPYL ALCOHOL [Suspect]
     Active Substance: ISOPROPYL ALCOHOL
     Indication: Product used for unknown indication
     Route: 065

REACTIONS (11)
  - Anaphylactic reaction [Unknown]
  - Dysphonia [Unknown]
  - Lip swelling [Unknown]
  - Malaise [Unknown]
  - Palmar erythema [Unknown]
  - Paraesthesia oral [Unknown]
  - Presyncope [Unknown]
  - Rash pruritic [Unknown]
  - Throat tightness [Unknown]
  - Tryptase increased [Unknown]
  - Urticaria [Unknown]
